FAERS Safety Report 24893072 (Version 1)
Quarter: 2025Q1

REPORT INFORMATION
  Report Type: Spontaneous
  Country: US (occurrence: US)
  Receive Date: 20250128
  Receipt Date: 20250128
  Transmission Date: 20250408
  Serious: No
  Sender: Haleon PLC
  Company Number: US-HALEON-2225340

PATIENT
  Age: 87 Year

DRUGS (1)
  1. ALLI [Suspect]
     Active Substance: ORLISTAT
     Indication: Product used for unknown indication

REACTIONS (1)
  - Abdominal pain upper [Unknown]
